FAERS Safety Report 4364527-3 (Version None)
Quarter: 2004Q2

REPORT INFORMATION
  Report Type: 
  Country: None (occurrence: None)
  Receive Date: 20040519
  Receipt Date: 20040510
  Transmission Date: 20050107
  Serious: Yes (Disabling)
  Sender: FDA-Public Use
  Company Number: DSK-2004-04158

PATIENT
  Age: 50 Year
  Sex: Male

DRUGS (1)
  1. OFLOXACIN [Suspect]
     Dosage: SORAT;AURICULAR (OTIC); FEW DAYS
     Route: 001
     Dates: start: 20040301, end: 20040301

REACTIONS (1)
  - TENDONITIS [None]
